FAERS Safety Report 25909883 (Version 2)
Quarter: 2025Q4

REPORT INFORMATION
  Report Type: Spontaneous
  Country: US (occurrence: US)
  Receive Date: 20251012
  Receipt Date: 20251215
  Transmission Date: 20260119
  Serious: No
  Sender: GALDERMA
  Company Number: US-GALDERMA-US2025018125

PATIENT

DRUGS (2)
  1. NEMOLIZUMAB [Suspect]
     Active Substance: NEMOLIZUMAB
     Indication: Dermatitis atopic
     Dosage: UNK
     Route: 058
     Dates: start: 20250815, end: 20250815
  2. NEMOLIZUMAB [Suspect]
     Active Substance: NEMOLIZUMAB
     Indication: Eczema
     Dosage: UNK
     Route: 058
     Dates: start: 2025, end: 2025

REACTIONS (2)
  - Device use error [Recovered/Resolved]
  - Inappropriate schedule of product administration [Recovered/Resolved]

NARRATIVE: CASE EVENT DATE: 20250912
